FAERS Safety Report 12053548 (Version 2)
Quarter: 2016Q1

REPORT INFORMATION
  Report Type: Spontaneous
  Country: TR (occurrence: TR)
  Receive Date: 20160209
  Receipt Date: 20160325
  Transmission Date: 20160526
  Serious: Yes (Hospitalization, Other)
  Sender: FDA-Public Use
  Company Number: PHHY2016TR013676

PATIENT
  Age: 55 Year
  Sex: Male

DRUGS (2)
  1. METFORMIN [Suspect]
     Active Substance: METFORMIN HYDROCHLORIDE
     Indication: PRODUCT USED FOR UNKNOWN INDICATION
     Dosage: 50 G, UNK (50 TABLETS)
     Route: 065
     Dates: start: 201504
  2. METFORMIN [Suspect]
     Active Substance: METFORMIN HYDROCHLORIDE
     Dosage: FIFTY TABLETS
     Dates: start: 201504

REACTIONS (8)
  - Suicide attempt [Unknown]
  - Intentional overdose [Unknown]
  - Nausea [Unknown]
  - Acute kidney injury [Unknown]
  - Vomiting [Unknown]
  - Lactic acidosis [Recovering/Resolving]
  - Myocardial ischaemia [Unknown]
  - Diarrhoea [Unknown]

NARRATIVE: CASE EVENT DATE: 201504
